FAERS Safety Report 8249557-3 (Version None)
Quarter: 2012Q2

REPORT INFORMATION
  Report Type: 
  Country: None (occurrence: None)
  Receive Date: 20120402
  Receipt Date: 20120328
  Transmission Date: 20120825
  Serious: Yes (Death)
  Sender: FDA-Public Use
  Company Number: US-ASTELLAS-2012US003191

PATIENT
  Sex: Female
  Weight: 76 kg

DRUGS (4)
  1. PROGRAF [Suspect]
     Indication: LUNG TRANSPLANT
     Dosage: 4 MG, BID
     Route: 048
     Dates: start: 20070304, end: 20111217
  2. MYFORTIC [Concomitant]
     Indication: LUNG TRANSPLANT
     Dosage: 540 MG, BID
     Route: 048
     Dates: start: 20070304, end: 20111217
  3. VFEND [Concomitant]
     Indication: ANTIFUNGAL PROPHYLAXIS
     Dosage: 200 MG, BID
     Route: 048
     Dates: start: 20070101, end: 20111217
  4. VALCYTE [Concomitant]
     Indication: CYTOMEGALOVIRUS INFECTION
     Dosage: 450 MG, UID/QD
     Route: 048
     Dates: start: 20070321, end: 20111217

REACTIONS (2)
  - OFF LABEL USE [None]
  - DEATH [None]
